FAERS Safety Report 7629497-0 (Version None)
Quarter: 2011Q3

REPORT INFORMATION
  Report Type: 
  Country: None (occurrence: None)
  Receive Date: 20110722
  Receipt Date: 20110714
  Transmission Date: 20111222
  Serious: Yes (Hospitalization, Other)
  Sender: FDA-Public Use
  Company Number: US-ACTELION-A-US2011-51279

PATIENT

DRUGS (11)
  1. FUROSEMIDE [Concomitant]
  2. POTASSIUM [Concomitant]
  3. TRACLEER [Suspect]
     Indication: PULMONARY ARTERIAL HYPERTENSION
     Dosage: 125 MG, BID
     Route: 048
  4. PLAVIX [Concomitant]
  5. VERAPAMIL [Concomitant]
  6. SERTRALINE HYDROCHLORIDE [Concomitant]
  7. DIOVAN [Concomitant]
  8. REVATIO [Concomitant]
  9. IRON SULFATETHIAMIN COMPOUND TAB [Concomitant]
  10. SINGULAIR [Concomitant]
  11. DOXAZOSIN MESYLATE [Concomitant]

REACTIONS (3)
  - HEARING IMPAIRED [None]
  - PNEUMONIA [None]
  - CONDITION AGGRAVATED [None]
